FAERS Safety Report 7474563-6 (Version None)
Quarter: 2011Q2

REPORT INFORMATION
  Report Type: 
  Country: None (occurrence: None)
  Receive Date: 20110503
  Receipt Date: 20110426
  Transmission Date: 20111010
  Serious: Yes (Other)
  Sender: FDA-Public Use
  Company Number: JP-1186008

PATIENT

DRUGS (1)
  1. AZOPT [Suspect]
     Dosage: OPHTHALMIC

REACTIONS (2)
  - BACTERIAL INFECTION [None]
  - LIMB INJURY [None]
